FAERS Safety Report 4330373-X (Version None)
Quarter: 2004Q2

REPORT INFORMATION
  Report Type: 
  Country: None (occurrence: None)
  Receive Date: 20040401
  Receipt Date: 20040401
  Transmission Date: 20050107
  Serious: Yes (Life-Threatening, Hospitalization)
  Sender: FDA-Public Use
  Company Number: None

PATIENT
  Age: 49 Year
  Sex: Female

DRUGS (1)
  1. AVELOX [Suspect]
     Indication: BRONCHITIS ACUTE
     Dosage: 1 TABLET DAILY ORAL
     Route: 048
     Dates: start: 20040325, end: 20040325

REACTIONS (9)
  - ANGIONEUROTIC OEDEMA [None]
  - CHILLS [None]
  - DISORIENTATION [None]
  - DYSPNOEA [None]
  - ERYTHEMA [None]
  - PHARYNGEAL OEDEMA [None]
  - TACHYCARDIA [None]
  - TREMOR [None]
  - VOMITING [None]
